FAERS Safety Report 11042928 (Version 2)
Quarter: 2015Q2

REPORT INFORMATION
  Report Type: Spontaneous
  Country: US (occurrence: US)
  Receive Date: 20150417
  Receipt Date: 20150518
  Transmission Date: 20150821
  Serious: Yes (Other)
  Sender: FDA-Public Use
  Company Number: US-009507513-1504USA004084

PATIENT
  Sex: Female

DRUGS (4)
  1. DULERA [Suspect]
     Active Substance: FORMOTEROL FUMARATE DIHYDRATE\MOMETASONE FUROATE
     Indication: ASTHMA
     Dosage: STARTED ABOUT ^ABOUT 2 OR 2.5 YEARS AGO^, 2 PUFFS/ TWICE DAILY
     Route: 055
     Dates: start: 201210
  2. DULERA [Suspect]
     Active Substance: FORMOTEROL FUMARATE DIHYDRATE\MOMETASONE FUROATE
     Dosage: OCCASIONALLY NEEDING TO USE 200/5 MCG DULERA, NO MORE THAN ABOUT A MONTH AT A TIME
     Route: 055
  3. NASACORT [Concomitant]
     Active Substance: TRIAMCINOLONE ACETONIDE
  4. DULERA [Suspect]
     Active Substance: FORMOTEROL FUMARATE DIHYDRATE\MOMETASONE FUROATE
     Indication: ASTHMA
     Dosage: 2 PUFFS TWICE DAILY
     Route: 055
     Dates: end: 201210

REACTIONS (6)
  - Throat irritation [Recovered/Resolved]
  - Product quality issue [Unknown]
  - Incorrect dose administered [Unknown]
  - Drug effect incomplete [Recovered/Resolved]
  - Dysphonia [Recovered/Resolved]
  - Aphonia [Recovered/Resolved]
